FAERS Safety Report 10607567 (Version 2)
Quarter: 2014Q4

REPORT INFORMATION
  Report Type: Report from Study
  Country: AR (occurrence: AR)
  Receive Date: 20141125
  Receipt Date: 20141204
  Transmission Date: 20150529
  Serious: Yes (Death, Hospitalization)
  Sender: FDA-Public Use
  Company Number: AR-BRISTOL-MYERS SQUIBB COMPANY-21520259

PATIENT
  Age: 47 Year
  Sex: Male

DRUGS (1)
  1. YERVOY [Suspect]
     Active Substance: IPILIMUMAB
     Dosage: 1DF=250 MG/ 10 ML

REACTIONS (3)
  - Fluid retention [Unknown]
  - Ascites [Unknown]
  - Respiratory failure [Fatal]

NARRATIVE: CASE EVENT DATE: 20141117
